FAERS Safety Report 7622721-X (Version None)
Quarter: 2011Q3

REPORT INFORMATION
  Report Type: 
  Country: None (occurrence: None)
  Receive Date: 20110719
  Receipt Date: 20110719
  Transmission Date: 20111222
  Serious: Yes (Other)
  Sender: FDA-Public Use
  Company Number: None

PATIENT
  Age: 29 Year
  Sex: Male
  Weight: 86.1834 kg

DRUGS (1)
  1. CYMBALTA [Suspect]
     Indication: GENERALISED ANXIETY DISORDER
     Dosage: 60MG 1 PER DAY PO
     Route: 048
     Dates: start: 20100915, end: 20110315

REACTIONS (4)
  - THINKING ABNORMAL [None]
  - PARAESTHESIA [None]
  - WITHDRAWAL SYNDROME [None]
  - FEELING ABNORMAL [None]
